FAERS Safety Report 15233738 (Version 2)
Quarter: 2018Q3

REPORT INFORMATION
  Report Type: Report from Study
  Country: TW (occurrence: TW)
  Receive Date: 20180802
  Receipt Date: 20180810
  Transmission Date: 20181010
  Serious: No
  Sender: FDA-Public Use
  Company Number: PHHY2018TW063982

PATIENT
  Age: 84 Year
  Sex: Female
  Weight: 55 kg

DRUGS (13)
  1. MADOPAR HBS [Concomitant]
     Active Substance: BENSERAZIDE HYDROCHLORIDE\LEVODOPA
     Indication: PARKINSON^S DISEASE
     Dosage: 125 MG, UNK
     Route: 048
     Dates: start: 20141219
  2. MAGNESIUM OXIDE. [Concomitant]
     Active Substance: MAGNESIUM OXIDE
     Indication: CONSTIPATION PROPHYLAXIS
     Dosage: 250 MG, UNK
     Route: 048
     Dates: start: 20150320
  3. ERISPAN [Concomitant]
     Active Substance: FLUDIAZEPAM
     Indication: SENILE DEMENTIA
     Dosage: UNK
     Route: 048
     Dates: start: 20171214, end: 20171228
  4. EXELON PATCH [Suspect]
     Active Substance: RIVASTIGMINE
     Indication: DEMENTIA ALZHEIMER^S TYPE
     Dosage: 9.5 MG (PATCH 10 CM2), QD
     Route: 062
     Dates: start: 20170525, end: 20170921
  5. EXELON [Concomitant]
     Active Substance: RIVASTIGMINE TARTRATE
     Indication: DEMENTIA ALZHEIMER^S TYPE
     Dosage: 4.5 MG, UNK
     Route: 048
     Dates: start: 20170921
  6. EXELON [Concomitant]
     Active Substance: RIVASTIGMINE TARTRATE
     Dosage: 4.5 MG, UNK
     Route: 048
     Dates: start: 20170224, end: 20170524
  7. NORVASC [Concomitant]
     Active Substance: AMLODIPINE BESYLATE
     Indication: HYPERTENSIVE HEART DISEASE
     Dosage: 5 MG, UNK
     Route: 048
     Dates: start: 20150116
  8. RIVOTRIL [Concomitant]
     Active Substance: CLONAZEPAM
     Indication: INSOMNIA
     Dosage: 0.5 MG, UNK
     Route: 048
     Dates: start: 20150213
  9. TRAJENTA [Concomitant]
     Active Substance: LINAGLIPTIN
     Indication: DIABETIC NEUROPATHY
     Dosage: 5 MG, UNK
     Route: 048
     Dates: start: 20160907
  10. SEROQUEL [Concomitant]
     Active Substance: QUETIAPINE FUMARATE
     Indication: SENILE DEMENTIA
     Dosage: 25 MG, UNK
     Route: 048
     Dates: start: 20171214
  11. EURODIN [Concomitant]
     Indication: INSOMNIA
     Dosage: 2 MG, UNK
     Route: 048
     Dates: start: 20150612
  12. MESYREL [Concomitant]
     Active Substance: TRAZODONE HYDROCHLORIDE
     Indication: SENILE DEMENTIA
     Dosage: 50 MG, UNK
     Route: 048
     Dates: start: 20171214, end: 20171228
  13. THROUGH [Concomitant]
     Indication: CONSTIPATION PROPHYLAXIS
     Dosage: 20 MG, UNK
     Route: 048
     Dates: start: 20150320, end: 20171218

REACTIONS (1)
  - Rash [Recovered/Resolved]

NARRATIVE: CASE EVENT DATE: 20170921
